FAERS Safety Report 9788424 (Version 3)
Quarter: 2014Q1

REPORT INFORMATION
  Report Type: Report from Study
  Country: CL (occurrence: CL)
  Receive Date: 20131230
  Receipt Date: 20140203
  Transmission Date: 20141002
  Serious: Yes (Hospitalization, Other)
  Sender: FDA-Public Use
  Company Number: PHHY2013CL152799

PATIENT
  Age: 75 Year
  Sex: Female

DRUGS (4)
  1. TAREG [Suspect]
     Indication: HYPERTENSION
     Dosage: 160 MG, DAILY
     Route: 048
  2. PRADAXA [Concomitant]
     Indication: ISCHAEMIC HEART DISEASE PROPHYLAXIS
     Dosage: UNK UKN, BID
     Route: 048
  3. CARVEDILOL [Concomitant]
     Indication: ISCHAEMIC HEART DISEASE PROPHYLAXIS
     Dosage: UNK UKN, UNK
     Route: 048
  4. PARACETAMOL [Concomitant]
     Dosage: UNK UKN, UNK

REACTIONS (5)
  - Tendonitis [Recovering/Resolving]
  - Pain [Unknown]
  - Angina unstable [Recovered/Resolved]
  - Constipation [Unknown]
  - Local swelling [Unknown]
